FAERS Safety Report 21909691 (Version 1)
Quarter: 2023Q1

REPORT INFORMATION
  Report Type: Spontaneous
  Country: JP (occurrence: JP)
  Receive Date: 20230125
  Receipt Date: 20230125
  Transmission Date: 20230418
  Serious: Yes (Death, Hospitalization, Other)
  Sender: FDA-Public Use
  Company Number: JP-BAXTER-2023BAX011222

PATIENT
  Age: 49 Year
  Sex: Female

DRUGS (6)
  1. DOXORUBICIN [Suspect]
     Active Substance: DOXORUBICIN
     Indication: Diffuse large B-cell lymphoma
     Dosage: 80 MG/DAY, 1-4 CYCLE, AS PART OF R-CHOP REGIMEN
     Route: 042
     Dates: start: 20220809, end: 20221015
  2. CYCLOPHOSPHAMIDE [Suspect]
     Active Substance: CYCLOPHOSPHAMIDE
     Indication: Diffuse large B-cell lymphoma
     Dosage: 1200 MG/DAY, 1-4 CYCLE, AS PART OF R-CHOP REGIMEN
     Route: 042
     Dates: start: 20220809, end: 20221015
  3. RITUXIMAB [Suspect]
     Active Substance: RITUXIMAB
     Indication: Diffuse large B-cell lymphoma
     Dosage: 600 MG/DAY, 1-4 CYCLE, AS PART OF R-CHOP REGIMEN
     Route: 042
     Dates: start: 20220809, end: 20221015
  4. ONCOVIN [Suspect]
     Active Substance: VINCRISTINE SULFATE
     Indication: Diffuse large B-cell lymphoma
     Dosage: 2 MG/DAY, 1-4 CYCLE, AS  PART OF R-CHOP REGIMEN
     Route: 042
     Dates: start: 20220809, end: 20221015
  5. PREDONINE [Suspect]
     Active Substance: PREDNISOLONE
     Indication: Diffuse large B-cell lymphoma
     Dosage: 100 MG/DAY, 1-4 CYCLE, AS PART OF R-CHOP REGIMEN
     Route: 048
     Dates: start: 20220809, end: 20221020
  6. TACROLIMUS [Concomitant]
     Active Substance: TACROLIMUS
     Indication: Liver transplant
     Dosage: START DATE: 1996
     Route: 048
     Dates: end: 20221022

REACTIONS (14)
  - Septic shock [Fatal]
  - Hypotension [Fatal]
  - Escherichia sepsis [Fatal]
  - Pyrexia [Fatal]
  - Myelosuppression [Fatal]
  - Febrile neutropenia [Fatal]
  - Full blood count decreased [Fatal]
  - Cardiac arrest [Unknown]
  - Hepatic steatosis [Unknown]
  - Hypophagia [Unknown]
  - Discomfort [Unknown]
  - Headache [Unknown]
  - Blood pressure decreased [Unknown]
  - Diarrhoea [Unknown]

NARRATIVE: CASE EVENT DATE: 20221022
